FAERS Safety Report 5853438-X (Version None)
Quarter: 2008Q3

REPORT INFORMATION
  Report Type: 
  Country: None (occurrence: None)
  Receive Date: 20080820
  Receipt Date: 20080811
  Transmission Date: 20090109
  Serious: Yes (Other)
  Sender: FDA-Public Use
  Company Number: 2008SP016296

PATIENT
  Sex: Male

DRUGS (1)
  1. DESLORATADINE [Suspect]
     Indication: URTICARIA
     Dosage: 5 MG; QID; PO
     Route: 048

REACTIONS (1)
  - HEMIPARESIS [None]
